FAERS Safety Report 11178631 (Version 1)
Quarter: 2015Q2

REPORT INFORMATION
  Report Type: Spontaneous
  Country: US (occurrence: US)
  Receive Date: 20150610
  Receipt Date: 20150610
  Transmission Date: 20150821
  Serious: No
  Sender: FDA-Public Use
  Company Number: US-PFIZER INC-2015190596

PATIENT
  Age: 74 Year
  Sex: Female

DRUGS (1)
  1. PREMARIN [Suspect]
     Active Substance: ESTROGENS, CONJUGATED
     Indication: VAGINAL DISORDER
     Dosage: 1 G, 2X/WEEK (AT NIGHT)
     Dates: start: 2012

REACTIONS (3)
  - Off label use [Unknown]
  - Back pain [Unknown]
  - Hyperhidrosis [Unknown]
